FAERS Safety Report 6805794-3 (Version None)
Quarter: 2010Q2

REPORT INFORMATION
  Report Type: 
  Country: None (occurrence: None)
  Receive Date: 20100629
  Receipt Date: 20090616
  Transmission Date: 20101027
  Serious: No
  Sender: FDA-Public Use
  Company Number: US-PFIZER INC-2004027810

PATIENT
  Sex: Male
  Weight: 70.3 kg

DRUGS (12)
  1. VIAGRA [Suspect]
     Indication: ERECTILE DYSFUNCTION
     Dosage: 100 MG, AS NEEDED
     Route: 048
     Dates: start: 20010101
  2. VITAMIN A [Concomitant]
     Dosage: UNK
     Route: 048
  3. VITAMIN B [Concomitant]
     Dosage: UNK
     Route: 048
  4. FISH OIL [Concomitant]
     Dosage: UNK
     Route: 048
  5. ATENOLOL [Concomitant]
     Dosage: UNK
     Route: 048
  6. AMLODIPINE [Concomitant]
     Dosage: UNK
     Route: 048
  7. HYDROCHLOROTHIAZIDE [Concomitant]
     Dosage: UNK
     Route: 048
  8. SIMVASTATIN [Concomitant]
     Dosage: UNK
     Route: 048
  9. CENTRUM SILVER [Concomitant]
     Dosage: UNK
     Route: 048
  10. CALCIUM [Concomitant]
     Dosage: UNK
     Route: 048
  11. VITAMIN D [Concomitant]
     Dosage: UNK
     Route: 048
  12. ACETYLSALICYLIC ACID [Concomitant]
     Dosage: UNK
     Route: 048

REACTIONS (1)
  - DRUG INEFFECTIVE [None]
